FAERS Safety Report 5692305-1 (Version None)
Quarter: 2008Q2

REPORT INFORMATION
  Report Type: 
  Country: None (occurrence: None)
  Receive Date: 20080402
  Receipt Date: 20080325
  Transmission Date: 20081010
  Serious: Yes (Congenital Anomaly)
  Sender: FDA-Public Use
  Company Number: US-PFIZER INC-2008028107

PATIENT

DRUGS (3)
  1. VIRACEPT [Suspect]
     Indication: HIV INFECTION
     Dosage: DAILY DOSE:2500MG
     Route: 048
  2. LAMIVUDINE + ZIDOVUDINE [Suspect]
     Indication: HIV INFECTION
     Dosage: TEXT:2 TABLETS
     Route: 048
  3. KALETRA [Suspect]
     Dosage: TEXT:400/100
     Route: 048

REACTIONS (3)
  - ALPHA 1 FOETOPROTEIN AMNIOTIC FLUID INCREASED [None]
  - DRUG EXPOSURE DURING PREGNANCY [None]
  - PYELOCALIECTASIS [None]
